FAERS Safety Report 18110928 (Version 2)
Quarter: 2020Q3

REPORT INFORMATION
  Report Type: Spontaneous
  Country: US (occurrence: US)
  Receive Date: 20200804
  Receipt Date: 20200809
  Transmission Date: 20201103
  Serious: Yes (Other)
  Sender: FDA-Public Use
  Company Number: NVSC2020US216375

PATIENT
  Age: 9 Year
  Sex: Male

DRUGS (2)
  1. MOMETASONE [Suspect]
     Active Substance: MOMETASONE
     Indication: PRURITUS
  2. MOMETASONE [Suspect]
     Active Substance: MOMETASONE
     Indication: ERYTHEMA
     Dosage: UNK
     Route: 061

REACTIONS (1)
  - Acute generalised exanthematous pustulosis [Recovering/Resolving]
